FAERS Safety Report 8342833-5 (Version None)
Quarter: 2012Q2

REPORT INFORMATION
  Report Type: 
  Country: None (occurrence: None)
  Receive Date: 20120503
  Receipt Date: 20110930
  Transmission Date: 20120825
  Serious: Yes (Hospitalization, Other)
  Sender: FDA-Public Use
  Company Number: SK-023939

PATIENT
  Age: 50 Year
  Sex: Male

DRUGS (2)
  1. PREDNISONE TAB [Suspect]
     Indication: CHRONIC LEUKAEMIA
     Dosage: 60 MG ORAL
     Route: 048
  2. (CHLORAMBUCIL) [Suspect]
     Indication: CHRONIC LYMPHOCYTIC LEUKAEMIA REFRACTORY
     Dosage: 16 MG ORAL
     Route: 048
     Dates: start: 20110629, end: 20110629

REACTIONS (1)
  - ANAEMIA HAEMOLYTIC AUTOIMMUNE [None]
